FAERS Safety Report 10396183 (Version 1)
Quarter: 2014Q1

REPORT INFORMATION
  Report Type: Spontaneous
  Country: US (occurrence: None)
  Receive Date: 20130124
  Receipt Date: 20130124
  Transmission Date: 20141002
  Serious: Yes (Hospitalization)
  Sender: FDA-Public Use
  Company Number: 2011PROUSA00976

PATIENT
  Age: 68 Year
  Sex: Male
  Weight: 127.9 kg

DRUGS (1)
  1. PROVENGE (SIPULEUCEL-T) SUSPENSION, 250ML [Suspect]
     Indication: PROSTATE CANCER METASTATIC
     Route: 042
     Dates: start: 20111114, end: 20111114

REACTIONS (4)
  - Back pain [None]
  - Nausea [None]
  - Dyspnoea [None]
  - Hyperhidrosis [None]
